FAERS Safety Report 18609838 (Version 1)
Quarter: 2020Q4

REPORT INFORMATION
  Report Type: Spontaneous
  Country: US (occurrence: US)
  Receive Date: 20201210
  Receipt Date: 20201210
  Transmission Date: 20210114
  Serious: No
  Sender: FDA-Public Use
  Company Number: None

PATIENT
  Age: 50 Year
  Sex: Female

DRUGS (2)
  1. AUBAGIO [Concomitant]
     Active Substance: TERIFLUNOMIDE
     Route: 058
     Dates: start: 2010
  2. BETASERON [Suspect]
     Active Substance: INTERFERON BETA-1B
     Route: 058
     Dates: start: 2010

REACTIONS (2)
  - Injection related reaction [None]
  - Feeling abnormal [None]

NARRATIVE: CASE EVENT DATE: 20201210
